FAERS Safety Report 24036127 (Version 1)
Quarter: 2024Q3

REPORT INFORMATION
  Report Type: Spontaneous
  Country: ES (occurrence: None)
  Receive Date: 20240701
  Receipt Date: 20240701
  Transmission Date: 20241017
  Serious: Yes (Life-Threatening, Hospitalization)
  Sender: ASTRAZENECA
  Company Number: 2024A142219

PATIENT
  Age: 21 Year
  Sex: Female
  Weight: 50 kg

DRUGS (20)
  1. OMEPRAZOLE [Suspect]
     Active Substance: OMEPRAZOLE
     Indication: Product used for unknown indication
     Dates: start: 20050302, end: 20050308
  2. CLORAZEPATE DIPOTASSIUM [Suspect]
     Active Substance: CLORAZEPATE DIPOTASSIUM
     Dosage: 10, 500
     Route: 048
     Dates: start: 20050302, end: 20050308
  3. KETOROLAC TROMETHAMINE [Suspect]
     Active Substance: KETOROLAC TROMETHAMINE
     Indication: Product used for unknown indication
     Dosage: 100 AMPOULES 1ML
     Route: 042
     Dates: start: 20050302, end: 20050308
  4. METAMIZOLE MAGNESIUM [Suspect]
     Active Substance: METAMIZOLE MAGNESIUM
     Indication: Pyrexia
     Dosage: 100 AMPOULES
     Route: 042
     Dates: start: 20050301, end: 20050308
  5. ACETAMINOPHEN [Suspect]
     Active Substance: ACETAMINOPHEN
     Indication: Product used for unknown indication
     Route: 042
     Dates: start: 20050302, end: 20050308
  6. VALPROATE SODIUM [Suspect]
     Active Substance: VALPROATE SODIUM
     Indication: Seizure
     Dosage: 1 INJECTABLE 4ML
     Route: 042
     Dates: start: 20050302, end: 20050310
  7. ZOFRAN [Concomitant]
     Active Substance: ONDANSETRON HYDROCHLORIDE
     Dosage: TABLETS COATED, 500 TABLETS
     Route: 048
     Dates: start: 20050302, end: 20050308
  8. PROPOFOL [Concomitant]
     Active Substance: PROPOFOL
  9. MANNITOL [Concomitant]
     Active Substance: MANNITOL
  10. KURGAN [Concomitant]
  11. PANTOPRAZOLE [Concomitant]
     Active Substance: PANTOPRAZOLE
  12. KURGAN [Concomitant]
  13. REMIFENTANIL [Concomitant]
     Active Substance: REMIFENTANIL
  14. SOLINITRINA [Concomitant]
  15. CISATRACURIUM [Concomitant]
     Active Substance: CISATRACURIUM
  16. BUPREX [Concomitant]
     Dosage: 0.5ML EVERY CYCLE
     Dates: start: 20050302, end: 20050302
  17. SEVOFLURANE [Concomitant]
     Active Substance: SEVOFLURANE
  18. FENTANYL [Concomitant]
     Active Substance: FENTANYL\FENTANYL CITRATE
  19. MIDAZOLAM [Concomitant]
     Active Substance: MIDAZOLAM
  20. VALIUM [Concomitant]
     Active Substance: DIAZEPAM

REACTIONS (3)
  - Leukopenia [Recovered/Resolved]
  - Agranulocytosis [Recovered/Resolved]
  - Pancytopenia [Recovered/Resolved]

NARRATIVE: CASE EVENT DATE: 20050303
